FAERS Safety Report 8383657-2 (Version None)
Quarter: 2012Q1

REPORT INFORMATION
  Report Type: 
  Country: None (occurrence: None)
  Receive Date: 20120323
  Receipt Date: 20110617
  Transmission Date: 20120608
  Serious: Yes (Hospitalization)
  Sender: FDA-Public Use
  Company Number: 163-21880-11030696

PATIENT
  Age: 63 Year
  Sex: Male

DRUGS (13)
  1. COMPAZINE [Concomitant]
  2. VOLTAREN (DICLOFENAC SODIIUM) [Concomitant]
  3. DEXAMETHASONE [Concomitant]
  4. PERCOCET [Concomitant]
  5. GLUCOSAMINE CHONDROITIN (GLUCOSAMINE W/CHONDROITIN SULFATE) [Concomitant]
  6. ASPIRIN [Concomitant]
  7. FENTANYL [Concomitant]
  8. VELCADE [Concomitant]
  9. OMEPRAZOLE [Concomitant]
  10. RANITIDINE HYDROCHLORIDE [Concomitant]
  11. REVLIMID [Suspect]
     Indication: MULTIPLE MYELOMA
     Dosage: 15 MG, 1 IN 1 D, PO; 25 MG, 1 IN 1 D, PO
     Route: 048
     Dates: start: 20110301
  12. REVLIMID [Suspect]
     Indication: MULTIPLE MYELOMA
     Dosage: 15 MG, 1 IN 1 D, PO; 25 MG, 1 IN 1 D, PO
     Route: 048
     Dates: start: 20101201, end: 20110201
  13. CRESTOR [Concomitant]

REACTIONS (2)
  - THROMBOCYTOPENIA [None]
  - VOMITING [None]
